FAERS Safety Report 14966810 (Version 1)
Quarter: 2018Q2

REPORT INFORMATION
  Report Type: Spontaneous
  Country: TH (occurrence: TH)
  Receive Date: 20180604
  Receipt Date: 20180604
  Transmission Date: 20180711
  Serious: No
  Sender: FDA-Public Use
  Company Number: TH-CHEPLA-C20170707

PATIENT

DRUGS (1)
  1. XENICAL [Suspect]
     Active Substance: ORLISTAT

REACTIONS (2)
  - Drug ineffective [Recovered/Resolved]
  - Counterfeit product administered [Recovered/Resolved]
